FAERS Safety Report 22149189 (Version 2)
Quarter: 2023Q2

REPORT INFORMATION
  Report Type: Report from Study
  Country: IL (occurrence: IL)
  Receive Date: 20230329
  Receipt Date: 20230405
  Transmission Date: 20230722
  Serious: Yes (Death)
  Sender: FDA-Public Use
  Company Number: IL-ABBVIE-22K-082-4332537-00

PATIENT
  Age: 74 Year
  Sex: Female
  Weight: 50 kg

DRUGS (13)
  1. VENETOCLAX [Suspect]
     Active Substance: VENETOCLAX
     Indication: Acute myeloid leukaemia
     Dosage: 100 MILLIGRAM, RAMP UP
     Route: 048
     Dates: start: 20211228, end: 20211228
  2. VENETOCLAX [Suspect]
     Active Substance: VENETOCLAX
     Indication: Acute myeloid leukaemia
     Dosage: 200 MILLIGRAM, RAMP UP
     Route: 048
     Dates: start: 20211229, end: 20211229
  3. VENETOCLAX [Suspect]
     Active Substance: VENETOCLAX
     Indication: Acute myeloid leukaemia
     Dosage: 300 MILLIGRAM, RAMP UP
     Route: 048
     Dates: start: 20211230, end: 20211230
  4. VENETOCLAX [Suspect]
     Active Substance: VENETOCLAX
     Indication: Acute myeloid leukaemia
     Dosage: 400 MILLIGRAM, RAMP UP
     Route: 048
     Dates: start: 20211231
  5. AZACITIDINE [Suspect]
     Active Substance: AZACITIDINE
     Indication: Acute myeloid leukaemia
     Dosage: 110 MILLIGRAM, CYCLE 1
     Route: 042
     Dates: start: 20211228, end: 20220103
  6. LEVOTHYROXINE [Concomitant]
     Active Substance: LEVOTHYROXINE
     Indication: Hypothyroidism
  7. BISOPROLOL FUMARATE [Concomitant]
     Active Substance: BISOPROLOL FUMARATE
     Indication: Hypertension
  8. LIPITOR [Concomitant]
     Active Substance: ATORVASTATIN CALCIUM
     Indication: Blood cholesterol
  9. BRILINTA [Concomitant]
     Active Substance: TICAGRELOR
     Indication: Myocardial ischaemia
  10. BRILINTA [Concomitant]
     Active Substance: TICAGRELOR
     Indication: Myocardial ischaemia
  11. ASPIRIN [Concomitant]
     Active Substance: ASPIRIN
     Indication: Myocardial ischaemia
  12. ALLOPURINOL [Concomitant]
     Active Substance: ALLOPURINOL
     Indication: Premedication
     Dates: start: 20211228
  13. ALLOPURINOL [Concomitant]
     Active Substance: ALLOPURINOL
     Indication: Premedication
     Dates: start: 20211228

REACTIONS (2)
  - Hypertension [Fatal]
  - Sinus bradycardia [Not Recovered/Not Resolved]

NARRATIVE: CASE EVENT DATE: 20220126
